FAERS Safety Report 6839009-7 (Version None)
Quarter: 2010Q3

REPORT INFORMATION
  Report Type: 
  Country: None (occurrence: None)
  Receive Date: 20100713
  Receipt Date: 20080507
  Transmission Date: 20110219
  Serious: No
  Sender: FDA-Public Use
  Company Number: US-PFIZER INC-2007038393

PATIENT
  Sex: Female
  Weight: 70.31 kg

DRUGS (2)
  1. CHANTIX [Suspect]
     Indication: SMOKING CESSATION THERAPY
     Dates: start: 20070115
  2. ZOCOR [Concomitant]

REACTIONS (4)
  - EUPHORIC MOOD [None]
  - NAUSEA [None]
  - SLEEP DISORDER [None]
  - STRESS [None]
